FAERS Safety Report 20091524 (Version 1)
Quarter: 2021Q4

REPORT INFORMATION
  Report Type: Spontaneous
  Country: ES (occurrence: ES)
  Receive Date: 20211119
  Receipt Date: 20211119
  Transmission Date: 20220303
  Serious: Yes (Life-Threatening, Hospitalization)
  Sender: FDA-Public Use
  Company Number: None

PATIENT
  Age: 84 Year
  Sex: Male
  Weight: 72.4 kg

DRUGS (14)
  1. NPLATE [Suspect]
     Active Substance: ROMIPLOSTIM
     Indication: Immune thrombocytopenia
     Dosage: 10 MCG/KG EACH 7 DAYS
     Route: 058
     Dates: start: 20200923
  2. ENALAPRIL [Concomitant]
     Active Substance: ENALAPRIL
     Dates: start: 20130417
  3. OMEPRAZOLE [Concomitant]
     Active Substance: OMEPRAZOLE
     Dosage: 20 MILLIGRAM, QD
     Dates: start: 20120103
  4. DICLOFENACO LEPORI [Concomitant]
     Dosage: IN THE LEFT EYE
     Dates: start: 20120103
  5. ALLOPURINOL [Concomitant]
     Active Substance: ALLOPURINOL
     Dates: start: 20180426
  6. ACETAMINOPHEN [Concomitant]
     Active Substance: ACETAMINOPHEN
     Dates: start: 20170317
  7. SPIRONOLACTONE [Concomitant]
     Active Substance: SPIRONOLACTONE
     Dosage: 25MG / MONDAYS, WEDNESDAYS, FRIDAYS
     Dates: start: 20180813
  8. FUROSEMIDE [Concomitant]
     Active Substance: FUROSEMIDE
     Dates: start: 20151203
  9. LORMETAZEPAM [Concomitant]
     Active Substance: LORMETAZEPAM
     Dates: start: 20180807
  10. COMBIGAN [Concomitant]
     Active Substance: BRIMONIDINE TARTRATE\TIMOLOL MALEATE
     Dosage: IN BOTH EYES
     Dates: start: 20120103
  11. CYCLOPENTOLATE HYDROCHLORIDE [Concomitant]
     Active Substance: CYCLOPENTOLATE HYDROCHLORIDE
     Dosage: EN AMBOS OJOS
     Dates: start: 20101228
  12. METILDIGOXIN [Concomitant]
     Active Substance: METILDIGOXIN
     Dates: start: 20110126
  13. FERBISOL [Concomitant]
     Dosage: 100 MILLIGRAM, QD
     Dates: start: 20181016
  14. ZALDIAR [Concomitant]
     Active Substance: ACETAMINOPHEN\TRAMADOL HYDROCHLORIDE
     Dates: start: 20171221

REACTIONS (1)
  - Angioedema [Recovered/Resolved]

NARRATIVE: CASE EVENT DATE: 20211027
